FAERS Safety Report 7089747-9 (Version None)
Quarter: 2010Q4

REPORT INFORMATION
  Report Type: 
  Country: None (occurrence: None)
  Receive Date: 20101108
  Receipt Date: 20100604
  Transmission Date: 20110411
  Serious: No
  Sender: FDA-Public Use
  Company Number: US-ABBOTT-10P-163-0649762-00

PATIENT
  Sex: Male

DRUGS (11)
  1. TRICOR [Suspect]
     Indication: BLOOD CHOLESTEROL INCREASED
     Route: 048
     Dates: start: 20060101, end: 20100201
  2. TRICOR [Suspect]
     Indication: HIGH DENSITY LIPOPROTEIN DECREASED
     Route: 048
     Dates: end: 20060101
  3. TRILIPIX [Suspect]
     Indication: BLOOD CHOLESTEROL INCREASED
     Dates: start: 20100201
  4. ZETIA [Concomitant]
     Indication: BLOOD CHOLESTEROL INCREASED
  5. METFORMIN HCL [Concomitant]
     Indication: TYPE 2 DIABETES MELLITUS
  6. ACTOS [Concomitant]
     Indication: TYPE 2 DIABETES MELLITUS
  7. ATENOLOL [Concomitant]
     Indication: HYPERTENSION
  8. CAPAZIDE [Concomitant]
     Indication: HYPERTENSION
  9. COUMADIN [Concomitant]
     Indication: ATRIAL FIBRILLATION
  10. JANUVIA [Concomitant]
     Indication: TYPE 2 DIABETES MELLITUS
  11. ASPIRIN [Concomitant]
     Indication: ATRIAL FIBRILLATION

REACTIONS (1)
  - DRUG INEFFECTIVE [None]
